FAERS Safety Report 11841544 (Version 1)
Quarter: 2015Q4

REPORT INFORMATION
  Report Type: Spontaneous
  Country: US (occurrence: US)
  Receive Date: 20151216
  Receipt Date: 20151216
  Transmission Date: 20160305
  Serious: Yes (Other)
  Sender: FDA-Public Use
  Company Number: US-MYLANLABS-2015M1044765

PATIENT

DRUGS (1)
  1. NAFCILLIN [Suspect]
     Active Substance: NAFCILLIN\NAFCILLIN SODIUM
     Indication: ARTHRITIS BACTERIAL
     Route: 042

REACTIONS (3)
  - Eosinophilia [Recovered/Resolved]
  - Hepatitis cholestatic [Recovered/Resolved]
  - Hypersensitivity [Recovered/Resolved]
